FAERS Safety Report 19447352 (Version 1)
Quarter: 2021Q2

REPORT INFORMATION
  Report Type: Spontaneous
  Country: US (occurrence: US)
  Receive Date: 20210621
  Receipt Date: 20210621
  Transmission Date: 20210717
  Serious: No
  Sender: FDA-Public Use
  Company Number: None

PATIENT
  Sex: Female

DRUGS (6)
  1. LOSARTAN 25MG [Concomitant]
     Active Substance: LOSARTAN
  2. FUROSEMIDE 40MG [Concomitant]
     Active Substance: FUROSEMIDE
  3. PANTOPRAZOLE 40MG [Concomitant]
     Active Substance: PANTOPRAZOLE SODIUM
  4. PROMACTA [Suspect]
     Active Substance: ELTROMBOPAG OLAMINE
  5. PREDNISONE 10MG [Concomitant]
     Active Substance: PREDNISONE
  6. CALCIUM 600MG W/ D [Concomitant]

REACTIONS (1)
  - Death [None]
